FAERS Safety Report 7672513 (Version 3)
Quarter: 2012Q4

REPORT INFORMATION
  Report Type: 
  Country: US (occurrence: US)
  Receive Date: 20101117
  Receipt Date: 20121227
  Transmission Date: 20130627
  Serious: Yes (Hospitalization, Other)
  Sender: FDA-Public Use
  Company Number: US-JNJFOC-20101104932

PATIENT
  Age: 58 Year
  Sex: Male

DRUGS (3)
  1. RISPERIDONE [Suspect]
     Indication: PSYCHOTIC DISORDER
     Route: 048
  2. METHADONE [Concomitant]
     Route: 048
  3. CLONAZEPAM [Concomitant]
     Dosage: in the evening
     Route: 065

REACTIONS (5)
  - Bulbar palsy [Recovered/Resolved]
  - VIIth nerve paralysis [Recovered/Resolved]
  - Gynaecomastia [Recovered/Resolved]
  - Hyperprolactinaemia [Recovered/Resolved]
  - Weight decreased [Recovered/Resolved]
